FAERS Safety Report 13534914 (Version 1)
Quarter: 2017Q2

REPORT INFORMATION
  Report Type: Spontaneous
  Country: NL (occurrence: NL)
  Receive Date: 20170511
  Receipt Date: 20170511
  Transmission Date: 20170830
  Serious: Yes (Life-Threatening)
  Sender: FDA-Public Use
  Company Number: NL-ALKABELLO-2017AA001706

PATIENT
  Age: 19 Year
  Sex: Female

DRUGS (3)
  1. FEXOFENADINE [Concomitant]
     Active Substance: FEXOFENADINE\FEXOFENADINE HYDROCHLORIDE
  2. LIVOCAB [Concomitant]
     Dosage: DOSE UNIT:0,5 MG/ML
  3. GRAZAX [Suspect]
     Active Substance: PHLEUM PRATENSE POLLEN
     Dosage: DOSE UNIT:75000 SQ-HOUSE DUST MITE
     Dates: start: 20161216, end: 20170425

REACTIONS (1)
  - T-cell lymphoma [Unknown]

NARRATIVE: CASE EVENT DATE: 20170404
